FAERS Safety Report 5292215-8 (Version None)
Quarter: 2007Q2

REPORT INFORMATION
  Report Type: 
  Country: None (occurrence: None)
  Receive Date: 20070410
  Receipt Date: 20070409
  Transmission Date: 20071010
  Serious: Yes (Hospitalization)
  Sender: FDA-Public Use
  Company Number: AT-ROCHE-229471

PATIENT
  Age: 48 Year
  Sex: Male
  Weight: 70 kg

DRUGS (9)
  1. ISOTRETINOIN [Suspect]
     Indication: MALIGNANT MELANOMA
     Route: 048
     Dates: start: 19980721
  2. INTERFERON ALFA [Suspect]
     Indication: MALIGNANT MELANOMA
     Route: 058
     Dates: start: 19980721, end: 19981210
  3. INTERFERON ALFA [Suspect]
     Route: 058
     Dates: start: 19981211, end: 19990212
  4. INTERFERON ALFA [Suspect]
     Route: 058
     Dates: start: 19990213, end: 19990521
  5. INTERFERON ALFA [Suspect]
     Route: 058
     Dates: start: 19990530, end: 19990615
  6. INTERFERON ALFA [Suspect]
     Route: 058
     Dates: start: 19990629, end: 19990818
  7. INTERFERON ALFA [Suspect]
     Route: 058
     Dates: start: 19990928
  8. VITAMIN B COMPLEX CAP [Concomitant]
  9. EUTHYROX 50 [Concomitant]
     Dates: start: 19990312

REACTIONS (1)
  - INJECTION SITE ABSCESS [None]
